FAERS Safety Report 4706203-0 (Version None)
Quarter: 2005Q2

REPORT INFORMATION
  Report Type: 
  Country: None (occurrence: None)
  Receive Date: 20050629
  Receipt Date: 20050618
  Transmission Date: 20051028
  Serious: Yes (Other)
  Sender: FDA-Public Use
  Company Number: 2005089445

PATIENT
  Age: 29 Year
  Sex: Female

DRUGS (2)
  1. UNISOM [Suspect]
     Indication: INTENTIONAL MISUSE
     Dosage: 10 TABLETS ONCE; ORAL
     Route: 048
     Dates: start: 20050618, end: 20050618
  2. ETHANOL (ETHANOL) [Suspect]
     Dosage: 4-5 BEERS; ORAL
     Route: 048
     Dates: start: 20050618, end: 20050618

REACTIONS (4)
  - ALCOHOL USE [None]
  - INTENTIONAL MISUSE [None]
  - LOSS OF CONSCIOUSNESS [None]
  - OVERDOSE [None]
